FAERS Safety Report 5647622-8 (Version None)
Quarter: 2008Q1

REPORT INFORMATION
  Report Type: 
  Country: None (occurrence: None)
  Receive Date: 20080303
  Receipt Date: 20080221
  Transmission Date: 20080703
  Serious: Yes (Hospitalization)
  Sender: FDA-Public Use
  Company Number: US-PFIZER INC-2008017862

PATIENT
  Age: 50 Year
  Sex: Female

DRUGS (12)
  1. CELECOXIB [Suspect]
     Indication: ARTHRALGIA
  2. METFORMIN HCL [Interacting]
  3. HYDROCHLOROTHIAZIDE [Interacting]
     Indication: POLYURIA
  4. CANDESARTAN CILEXETIL [Interacting]
  5. L-THYROXIN [Concomitant]
  6. ACETAMINOPHEN W/ CODEINE [Concomitant]
  7. ASPIRIN [Concomitant]
  8. SIMVASTATIN [Concomitant]
  9. OMEPRAZOLE [Concomitant]
  10. PREGABALIN [Concomitant]
  11. TIZANIDINE HCL [Concomitant]
  12. ARIPIPRAZOLE [Concomitant]

REACTIONS (4)
  - DRUG INTERACTION [None]
  - LACTIC ACIDOSIS [None]
  - PANCREATITIS ACUTE [None]
  - RENAL FAILURE ACUTE [None]
